FAERS Safety Report 22151562 (Version 1)
Quarter: 2023Q1

REPORT INFORMATION
  Report Type: Other
  Country: US (occurrence: US)
  Receive Date: 20230329
  Receipt Date: 20230329
  Transmission Date: 20230418
  Serious: Yes (Hospitalization, Other)
  Sender: FDA-Public Use
  Company Number: None

PATIENT

DRUGS (9)
  1. ONCASPAR [Suspect]
     Active Substance: PEGASPARGASE
     Indication: Acute lymphocytic leukaemia
     Dosage: UNK
     Route: 065
  2. VINCRISTINE SULFATE [Suspect]
     Active Substance: VINCRISTINE SULFATE
     Indication: Acute lymphocytic leukaemia
     Dosage: UNK
     Route: 065
  3. METHYLPREDNISOLONE ACETATE [Suspect]
     Active Substance: METHYLPREDNISOLONE ACETATE
     Indication: Acute lymphocytic leukaemia
     Dosage: UNK
     Route: 065
  4. DAUNORUBICIN [Suspect]
     Active Substance: DAUNORUBICIN
     Indication: Acute lymphocytic leukaemia
     Route: 065
  5. IMATINIB [Concomitant]
     Active Substance: IMATINIB
     Indication: Acute lymphocytic leukaemia
     Dosage: 340 MG/M2, QD
     Route: 048
  6. METHOTREXATE [Concomitant]
     Active Substance: METHOTREXATE
     Indication: Acute lymphocytic leukaemia
     Route: 037
  7. METHOTREXATE [Concomitant]
     Active Substance: METHOTREXATE
     Route: 042
  8. BLINATUMOMAB [Concomitant]
     Active Substance: BLINATUMOMAB
     Indication: Acute lymphocytic leukaemia
     Dosage: 15 MG/M2, QD, CONTINUOUSLY FOR 29-DAY CYCLES
     Route: 065
  9. BLINATUMOMAB [Concomitant]
     Active Substance: BLINATUMOMAB
     Dosage: 5 MG/M2, QD, CONTINUOUSLY FOR 29-DAY CYCLES
     Route: 065

REACTIONS (7)
  - Fungaemia [Recovered/Resolved]
  - Pancytopenia [Recovered/Resolved]
  - Pericardial effusion [Recovered/Resolved]
  - Septic shock [Recovered/Resolved]
  - Pneumonia [Recovered/Resolved]
  - Febrile neutropenia [Recovered/Resolved]
  - Drug ineffective [Recovered/Resolved]
